FAERS Safety Report 8185767-1 (Version None)
Quarter: 2012Q1

REPORT INFORMATION
  Report Type: 
  Country: None (occurrence: None)
  Receive Date: 20120305
  Receipt Date: 20120224
  Transmission Date: 20120608
  Serious: Yes (Other)
  Sender: FDA-Public Use
  Company Number: US-ASTRAZENECA-2012SE12986

PATIENT
  Sex: Female

DRUGS (11)
  1. ASPIRIN [Concomitant]
  2. SODIUM BICARBONATE [Concomitant]
  3. CRESTOR [Suspect]
     Route: 048
  4. CRESTOR [Suspect]
     Route: 048
  5. IRON SUPPLEMENT [Concomitant]
  6. ZETIA [Concomitant]
  7. CALCITRIOL [Concomitant]
  8. LOSARTAN POTASSIUM [Concomitant]
  9. METOPROLOL SUCCINATE [Concomitant]
  10. MULTI-VITAMINS [Concomitant]
     Dosage: DAILY
  11. FISH OIL [Concomitant]
     Dosage: TWO TIMES A DAY

REACTIONS (2)
  - FATIGUE [None]
  - RENAL FAILURE CHRONIC [None]
